FAERS Safety Report 6904528-1 (Version None)
Quarter: 2010Q3

REPORT INFORMATION
  Report Type: 
  Country: None (occurrence: None)
  Receive Date: 20100804
  Receipt Date: 20090605
  Transmission Date: 20110219
  Serious: Yes (Other)
  Sender: FDA-Public Use
  Company Number: US-PFIZER INC-2009196416

PATIENT
  Sex: Female
  Weight: 70.295 kg

DRUGS (5)
  1. LYRICA [Suspect]
     Indication: FIBROMYALGIA
     Dosage: 75 MG, 1X/DAY
     Route: 048
  2. LYRICA [Suspect]
     Indication: NERVE COMPRESSION
  3. LISINOPRIL [Concomitant]
  4. MONTELUKAST [Concomitant]
     Dosage: UNK
  5. PULMICORT [Concomitant]
     Dosage: UNK

REACTIONS (2)
  - GAIT DISTURBANCE [None]
  - HALLUCINATION [None]
